FAERS Safety Report 9981541 (Version 2)
Quarter: 2014Q3

REPORT INFORMATION
  Report Type: Report from Study
  Country: US (occurrence: US)
  Receive Date: 20140307
  Receipt Date: 20140704
  Transmission Date: 20150326
  Serious: Yes (Hospitalization)
  Sender: FDA-Public Use
  Company Number: US-ABBVIE-13P-163-1179784-00

PATIENT
  Age: 67 Year
  Sex: Female

DRUGS (14)
  1. WARFARIN [Concomitant]
     Active Substance: WARFARIN
     Dosage: TU/F
     Route: 048
  2. ANTIDIARRHEAL [Concomitant]
     Indication: DIARRHOEA
  3. WARFARIN [Concomitant]
     Active Substance: WARFARIN
     Dosage: TUESDAY
     Route: 048
  4. VITAMIN B12 [Concomitant]
     Active Substance: CYANOCOBALAMIN
     Indication: VITAMIN SUPPLEMENTATION
  5. LYRICA [Concomitant]
     Active Substance: PREGABALIN
     Indication: NEUROPATHY PERIPHERAL
     Route: 048
  6. FISH OIL [Concomitant]
     Active Substance: FISH OIL
     Indication: PRODUCT USED FOR UNKNOWN INDICATION
     Dosage: IF SHE REMEMBERS
  7. METOPROLOL [Concomitant]
     Active Substance: METOPROLOL
     Indication: ATRIAL FIBRILLATION
     Route: 048
  8. HUMIRA [Suspect]
     Active Substance: ADALIMUMAB
     Indication: CROHN^S DISEASE
     Dates: start: 20131026
  9. WARFARIN [Concomitant]
     Active Substance: WARFARIN
     Indication: ATRIAL FIBRILLATION
     Dosage: M/W/TH/S/S
     Route: 048
  10. WARFARIN [Concomitant]
     Active Substance: WARFARIN
     Dosage: M/W/TH/F/S/S
     Route: 048
  11. ALLERCHECK [Concomitant]
     Indication: SINUS DISORDER
  12. CYMBALTA [Suspect]
     Active Substance: DULOXETINE HYDROCHLORIDE
     Indication: PRODUCT USED FOR UNKNOWN INDICATION
     Dosage: HS
     Dates: start: 201405
  13. CENTRUM SILVER [Concomitant]
     Active Substance: VITAMINS
     Indication: VITAMIN SUPPLEMENTATION
  14. GENERIC IMMODIUM [Concomitant]
     Indication: DIARRHOEA
     Dosage: ONE IN AM AND THEN AS REQUIRED

REACTIONS (14)
  - Abdominal pain [Recovered/Resolved]
  - Arthralgia [Not Recovered/Not Resolved]
  - Feeling hot [Unknown]
  - Upper-airway cough syndrome [Unknown]
  - Vomiting [Unknown]
  - Hypophagia [Unknown]
  - Toothache [Unknown]
  - Cough [Unknown]
  - Fluid intake reduced [Unknown]
  - Sleep disorder [Unknown]
  - Intestinal obstruction [Unknown]
  - Nasal discharge discolouration [Unknown]
  - Sinusitis [Unknown]
  - Diarrhoea [Unknown]

NARRATIVE: CASE EVENT DATE: 201311
